FAERS Safety Report 9136496 (Version 1)
Quarter: 2013Q1

REPORT INFORMATION
  Report Type: Spontaneous
  Country: US (occurrence: US)
  Receive Date: 20130304
  Receipt Date: 20130304
  Transmission Date: 20140127
  Serious: No
  Sender: FDA-Public Use
  Company Number: US-ABBOTT-12P-163-0931273-00

PATIENT
  Sex: Male
  Weight: 90.8 kg

DRUGS (2)
  1. ANDROGEL 1% [Suspect]
     Indication: BLOOD TESTOSTERONE DECREASED
     Dosage: DAILY DOSE 5 GRAM
     Dates: start: 201102, end: 201103
  2. TEMEZEPAM [Concomitant]
     Indication: INSOMNIA

REACTIONS (1)
  - Drug administration error [Not Recovered/Not Resolved]
